FAERS Safety Report 7514756-2 (Version None)
Quarter: 2011Q2

REPORT INFORMATION
  Report Type: 
  Country: None (occurrence: None)
  Receive Date: 20110526
  Receipt Date: 20110526
  Transmission Date: 20111010
  Serious: Yes (Life-Threatening, Hospitalization)
  Sender: FDA-Public Use
  Company Number: None

PATIENT
  Sex: Male
  Weight: 72.5755 kg

DRUGS (1)
  1. FLOVENT HFA [Suspect]
     Indication: ASTHMA
     Dosage: 2 PUFFS TWICE DAILY RESPIRATORY 054
     Route: 055
     Dates: start: 20110508, end: 20110510

REACTIONS (3)
  - PAIN [None]
  - LOSS OF CONSCIOUSNESS [None]
  - HYPERHIDROSIS [None]
